FAERS Safety Report 7971611-1 (Version None)
Quarter: 2011Q4

REPORT INFORMATION
  Report Type: 
  Country: None (occurrence: None)
  Receive Date: 20111212
  Receipt Date: 20111202
  Transmission Date: 20120403
  Serious: Yes (Hospitalization)
  Sender: FDA-Public Use
  Company Number: US-ASTRAZENECA-2011SE68489

PATIENT
  Age: 53 Year
  Sex: Female
  Weight: 77.1 kg

DRUGS (4)
  1. METFORMIN HCL [Concomitant]
  2. LITHIUM [Concomitant]
     Indication: BIPOLAR DISORDER
  3. SEROQUEL [Suspect]
     Indication: BIPOLAR DISORDER
     Route: 048
     Dates: start: 20080101
  4. SEROQUEL [Suspect]
     Route: 048

REACTIONS (9)
  - DIABETES MELLITUS [None]
  - BLINDNESS [None]
  - MENTAL DISORDER [None]
  - THIRST [None]
  - TREMOR [None]
  - DRUG DOSE OMISSION [None]
  - BLOOD GLUCOSE INCREASED [None]
  - WEIGHT DECREASED [None]
  - INCORRECT DOSE ADMINISTERED [None]
